FAERS Safety Report 12890003 (Version 1)
Quarter: 2016Q4

REPORT INFORMATION
  Report Type: Report from Study
  Country: DE (occurrence: DE)
  Receive Date: 20161027
  Receipt Date: 20161027
  Transmission Date: 20170207
  Serious: Yes (Other)
  Sender: FDA-Public Use
  Company Number: DE-JNJFOC-20161023172

PATIENT
  Age: 28 Year

DRUGS (2)
  1. XARELTO [Suspect]
     Active Substance: RIVAROXABAN
     Indication: PRODUCT USED FOR UNKNOWN INDICATION
     Route: 048
  2. RAMIPRIL. [Suspect]
     Active Substance: RAMIPRIL
     Indication: HYPERTENSION
     Route: 065

REACTIONS (8)
  - Social fear [Unknown]
  - Headache [Recovered/Resolved]
  - Illness anxiety disorder [Unknown]
  - Fatigue [Unknown]
  - Head discomfort [Unknown]
  - Hypersomnia [Unknown]
  - Headache [Unknown]
  - Phobia [Unknown]
